FAERS Safety Report 7606528-5 (Version None)
Quarter: 2011Q3

REPORT INFORMATION
  Report Type: 
  Country: None (occurrence: None)
  Receive Date: 20110713
  Receipt Date: 20110711
  Transmission Date: 20111222
  Serious: Yes (Hospitalization, Other)
  Sender: FDA-Public Use
  Company Number: CA-PFIZER INC-2011156095

PATIENT
  Sex: Male

DRUGS (8)
  1. FUROSEMIDE [Concomitant]
     Dosage: 20 MG, UNK
  2. OXYCODONE [Concomitant]
     Dosage: UNK
  3. SPIRIVA [Concomitant]
     Dosage: UNK
  4. QUINAPRIL [Concomitant]
     Dosage: 40 MG, UNK
  5. ACETAMINOPHEN [Concomitant]
     Dosage: 2X/DAY
  6. BETAHISTINE [Concomitant]
     Dosage: 16 MG, 3X/DAY
  7. MIRTAZAPINE [Concomitant]
     Dosage: 30 MG, 1X/DAY
  8. VARENICLINE TARTRATE [Suspect]
     Dosage: UNK
     Dates: start: 20110627

REACTIONS (1)
  - HYPONATRAEMIA [None]
